FAERS Safety Report 8307741-4 (Version None)
Quarter: 2012Q2

REPORT INFORMATION
  Report Type: 
  Country: None (occurrence: None)
  Receive Date: 20120424
  Receipt Date: 20120419
  Transmission Date: 20120825
  Serious: Yes (Other)
  Sender: FDA-Public Use
  Company Number: PHHY2012BR034045

PATIENT
  Sex: Female

DRUGS (3)
  1. CALCIUM CARBONATE [Concomitant]
  2. ZOLEDRONOC ACID [Suspect]
     Indication: OSTEOPOROSIS
     Dosage: 5 MG/100 ML YEARLY
     Route: 042
     Dates: start: 20120418
  3. VITAMIN D [Concomitant]

REACTIONS (5)
  - BONE PAIN [None]
  - URINARY INCONTINENCE [None]
  - APHAGIA [None]
  - ARTHRALGIA [None]
  - PAIN [None]
